FAERS Safety Report 22090752 (Version 1)
Quarter: 2023Q1

REPORT INFORMATION
  Report Type: Spontaneous
  Country: US (occurrence: US)
  Receive Date: 20230313
  Receipt Date: 20230313
  Transmission Date: 20230417
  Serious: Yes (Death, Hospitalization, Other)
  Sender: FDA-Public Use
  Company Number: US-ANIPHARMA-2023-US-006196

PATIENT
  Age: 62 Year
  Sex: Male

DRUGS (5)
  1. CHLORTHALIDONE [Suspect]
     Active Substance: CHLORTHALIDONE
     Indication: Product used for unknown indication
  2. AMLODIPINE [Suspect]
     Active Substance: AMLODIPINE BESYLATE
     Indication: Product used for unknown indication
  3. CLONIDINE [Suspect]
     Active Substance: CLONIDINE
     Indication: Product used for unknown indication
  4. HYDROXYZINE [Suspect]
     Active Substance: HYDROXYZINE HYDROCHLORIDE
     Indication: Product used for unknown indication
  5. PRAVASTATIN [Suspect]
     Active Substance: PRAVASTATIN
     Indication: Product used for unknown indication

REACTIONS (7)
  - Toxicity to various agents [Fatal]
  - Bradycardia [Fatal]
  - Depressed level of consciousness [Fatal]
  - Coagulopathy [Fatal]
  - Acute kidney injury [Fatal]
  - Rhabdomyolysis [Fatal]
  - Hypotension [Fatal]
